FAERS Safety Report 6026792-6 (Version None)
Quarter: 2009Q1

REPORT INFORMATION
  Report Type: 
  Country: None (occurrence: None)
  Receive Date: 20090105
  Receipt Date: 20081229
  Transmission Date: 20090719
  Serious: Yes (Other)
  Sender: FDA-Public Use
  Company Number: CN-JNJFOC-20081206850

PATIENT
  Sex: Male

DRUGS (1)
  1. NIZORAL [Suspect]
     Indication: ONYCHOMYCOSIS

REACTIONS (1)
  - DIABETES MELLITUS [None]
